FAERS Safety Report 12622029 (Version 1)
Quarter: 2016Q3

REPORT INFORMATION
  Report Type: Spontaneous
  Country: GB (occurrence: GB)
  Receive Date: 20160804
  Receipt Date: 20160804
  Transmission Date: 20161109
  Serious: Yes (Other)
  Sender: FDA-Public Use
  Company Number: GB-PFIZER INC-2016364414

PATIENT
  Age: 84 Year
  Sex: Female

DRUGS (1)
  1. SALAZOPYRIN [Suspect]
     Active Substance: SULFASALAZINE
     Dosage: UNK
     Dates: start: 2014

REACTIONS (4)
  - Dysstasia [Unknown]
  - Abasia [Unknown]
  - Fall [Unknown]
  - Bone loss [Unknown]
